FAERS Safety Report 9455391 (Version 1)
Quarter: 2013Q3

REPORT INFORMATION
  Report Type: Report from Study
  Country: GB (occurrence: GB)
  Receive Date: 20130813
  Receipt Date: 20130813
  Transmission Date: 20140515
  Serious: Yes (Hospitalization)
  Sender: FDA-Public Use
  Company Number: PHHO2013GB010437

PATIENT
  Sex: 0

DRUGS (5)
  1. CGS 20267 [Suspect]
     Indication: BREAST CANCER
     Dosage: 2.5 MG, QD
     Route: 048
     Dates: start: 20110808
  2. ACEBUTOLOL [Concomitant]
     Dosage: UNK
     Route: 048
     Dates: start: 20050615
  3. SPIRONOLACTONE [Concomitant]
     Dosage: UNK
     Route: 048
     Dates: start: 20050615
  4. LEVOTHYROXINE SODIUM [Concomitant]
     Dosage: UNK
     Route: 048
     Dates: start: 20050615
  5. PLATELET AGGREGATION INHIBITORS [Concomitant]
     Dosage: UNK
     Route: 048

REACTIONS (1)
  - Carotid artery stenosis [Recovered/Resolved]
